FAERS Safety Report 11908366 (Version 1)
Quarter: 2016Q1

REPORT INFORMATION
  Report Type: Spontaneous
  Country: US (occurrence: US)
  Receive Date: 20160111
  Receipt Date: 20160111
  Transmission Date: 20160526
  Serious: No
  Sender: FDA-Public Use
  Company Number: US-GLAXOSMITHKLINE-US2015184637

PATIENT
  Sex: Male

DRUGS (1)
  1. NICORETTE [Suspect]
     Active Substance: NICOTINE
     Indication: SMOKING CESSATION THERAPY
     Dosage: UNK
     Dates: start: 2006

REACTIONS (5)
  - Breath odour [Unknown]
  - Alopecia [Unknown]
  - Dyspepsia [Unknown]
  - Nicotine dependence [Unknown]
  - Oropharyngeal pain [Unknown]
